FAERS Safety Report 11318683 (Version 1)
Quarter: 2015Q3

REPORT INFORMATION
  Report Type: Spontaneous
  Country: FR (occurrence: FR)
  Receive Date: 20150729
  Receipt Date: 20150729
  Transmission Date: 20151125
  Serious: Yes (Hospitalization)
  Sender: FDA-Public Use
  Company Number: FR-009507513-1507FRA011675

PATIENT
  Age: 34 Year
  Sex: Female

DRUGS (3)
  1. LOXEN [Suspect]
     Active Substance: NICARDIPINE HYDROCHLORIDE
     Dosage: 3CC/HOUR DURING 3 HOURS AND THEN 5 CC/HOUR DURING 6 HOURS
     Route: 042
     Dates: start: 20150707, end: 20150707
  2. CELESTENE [Suspect]
     Active Substance: BETAMETHASONE
     Indication: FOETAL GROWTH RESTRICTION
     Dosage: UNK
     Route: 042
     Dates: start: 20150705, end: 20150706
  3. LOXEN [Suspect]
     Active Substance: NICARDIPINE HYDROCHLORIDE
     Indication: PREMATURE LABOUR
     Dosage: 2 ML, QH
     Route: 042
     Dates: start: 20150706, end: 20150706

REACTIONS (3)
  - Acute pulmonary oedema [Recovered/Resolved]
  - Pleural effusion [Unknown]
  - Dyspnoea [Recovered/Resolved]

NARRATIVE: CASE EVENT DATE: 20150707
